FAERS Safety Report 17250035 (Version 1)
Quarter: 2020Q1

REPORT INFORMATION
  Report Type: Spontaneous
  Country: FR (occurrence: FR)
  Receive Date: 20200109
  Receipt Date: 20200109
  Transmission Date: 20200409
  Serious: Yes (Other)
  Sender: FDA-Public Use
  Company Number: FR-MACLEODS PHARMACEUTICALS US LTD-MAC2019024715

PATIENT

DRUGS (3)
  1. CLOBETASOL [Suspect]
     Active Substance: CLOBETASOL
     Indication: PEMPHIGOID
     Dosage: SUPERPOTENT TOPICAL STEROIDS (STS) IN A DECREASED DOSE
     Route: 061
  2. CLOBETASOL [Suspect]
     Active Substance: CLOBETASOL
     Dosage: 30 GRAM, QD SUPERPOTENT TOPICAL STEROIDS (STS)
     Route: 061
  3. METHOTREXATE. [Suspect]
     Active Substance: METHOTREXATE
     Indication: PEMPHIGOID
     Dosage: 10 MILLIGRAM, 1 WEEK LOW-DOSE MTX
     Route: 048

REACTIONS (3)
  - Kaposi^s sarcoma [Recovered/Resolved]
  - Human herpesvirus 8 infection [Unknown]
  - Disease recurrence [Recovered/Resolved]
